FAERS Safety Report 8476529-6 (Version None)
Quarter: 2012Q2

REPORT INFORMATION
  Report Type: 
  Country: None (occurrence: None)
  Receive Date: 20120628
  Receipt Date: 20120619
  Transmission Date: 20120825
  Serious: Yes (Other)
  Sender: FDA-Public Use
  Company Number: US-BAYER-2012-052043

PATIENT
  Age: 69 Year
  Sex: Male
  Weight: 174.18 kg

DRUGS (3)
  1. XARELTO [Interacting]
     Indication: ATRIAL FIBRILLATION
     Dosage: 20 MG, UNK
     Route: 048
  2. XARELTO [Interacting]
     Indication: CEREBROVASCULAR ACCIDENT PROPHYLAXIS
  3. ASPIRIN [Suspect]

REACTIONS (2)
  - HAEMATOMA [None]
  - CONJUNCTIVAL HAEMORRHAGE [None]
